FAERS Safety Report 19651232 (Version 2)
Quarter: 2021Q3

REPORT INFORMATION
  Report Type: Spontaneous
  Country: US (occurrence: US)
  Receive Date: 20210803
  Receipt Date: 20210816
  Transmission Date: 20211014
  Serious: Yes (Other)
  Sender: FDA-Public Use
  Company Number: US-PFIZER INC-202100941787

PATIENT
  Age: 72 Year
  Sex: Female
  Weight: 47.63 kg

DRUGS (2)
  1. BOSULIF [Suspect]
     Active Substance: BOSUTINIB MONOHYDRATE
     Dosage: UNK, ALTERNATE DAY (EVERY OTHER DAY)
     Dates: end: 20210315
  2. BOSULIF [Suspect]
     Active Substance: BOSUTINIB MONOHYDRATE
     Indication: CHRONIC MYELOID LEUKAEMIA
     Dosage: 100 MG, 1X/DAY
     Dates: start: 201801, end: 20210210

REACTIONS (12)
  - Ocular discomfort [Recovered/Resolved]
  - Feeling abnormal [Unknown]
  - Headache [Recovered/Resolved]
  - Presyncope [Unknown]
  - Thrombosis [Recovered/Resolved]
  - Head discomfort [Recovered/Resolved]
  - Off label use [Unknown]
  - Intracranial pressure increased [Recovered/Resolved]
  - Swelling [Recovered/Resolved]
  - Seizure [Unknown]
  - Vein disorder [Recovered/Resolved]
  - Intentional product misuse [Unknown]

NARRATIVE: CASE EVENT DATE: 201801
